FAERS Safety Report 6369199-4 (Version None)
Quarter: 2009Q3

REPORT INFORMATION
  Report Type: 
  Country: None (occurrence: None)
  Receive Date: 20090908
  Receipt Date: 20090826
  Transmission Date: 20100115
  Serious: Yes (Other)
  Sender: FDA-Public Use
  Company Number: GAM-129-09-AU

PATIENT
  Age: 46 Year
  Sex: Male

DRUGS (2)
  1. OCTAGAM [Suspect]
     Indication: NEURODEGENERATIVE DISORDER
     Dosage: I.V.
     Route: 042
     Dates: end: 20071201
  2. OCTAGAM [Suspect]
     Indication: NEURODEGENERATIVE DISORDER
     Dosage: I.V.
     Route: 042
     Dates: start: 20071201

REACTIONS (3)
  - HTLV-1 TEST POSITIVE [None]
  - HTLV-2 TEST POSITIVE [None]
  - TRANSMISSION OF AN INFECTIOUS AGENT VIA A MEDICINAL PRODUCT [None]
